FAERS Safety Report 11593256 (Version 1)
Quarter: 2015Q4

REPORT INFORMATION
  Report Type: Other
  Country: IT (occurrence: IT)
  Receive Date: 20151005
  Receipt Date: 20151005
  Transmission Date: 20160304
  Serious: Yes (Other)
  Sender: FDA-Public Use
  Company Number: IT-ACTELION-A-CH2015-124711

PATIENT
  Age: 10 Year
  Sex: Female

DRUGS (1)
  1. ZAVESCA [Suspect]
     Active Substance: MIGLUSTAT
     Indication: NIEMANN-PICK DISEASE
     Route: 048

REACTIONS (8)
  - Ataxia [Unknown]
  - Gaze palsy [Unknown]
  - Cognitive disorder [Unknown]
  - Haemangioma of skin [Unknown]
  - Paralysis [Unknown]
  - Cataplexy [Unknown]
  - Drug ineffective [Unknown]
  - Cerebellar syndrome [Unknown]
